FAERS Safety Report 16218804 (Version 1)
Quarter: 2019Q2

REPORT INFORMATION
  Report Type: Spontaneous
  Country: US (occurrence: US)
  Receive Date: 20190419
  Receipt Date: 20190419
  Transmission Date: 20190711
  Serious: No
  Sender: FDA-Public Use
  Company Number: US-UPSHER-SMITH LABORATORIES, LLC-2018USL00170

PATIENT
  Sex: Female
  Weight: 108.84 kg

DRUGS (2)
  1. QUDEXY XR [Suspect]
     Active Substance: TOPIRAMATE
     Indication: SEIZURE
     Dosage: 150 MG, 1X/DAY ^AT BEDTIME^
     Route: 048
     Dates: start: 201802
  2. BYSTOLIC [Concomitant]
     Active Substance: NEBIVOLOL HYDROCHLORIDE
     Dosage: UNK

REACTIONS (1)
  - Memory impairment [Not Recovered/Not Resolved]

NARRATIVE: CASE EVENT DATE: 2018
